FAERS Safety Report 23903709 (Version 2)
Quarter: 2024Q2

REPORT INFORMATION
  Report Type: Spontaneous
  Country: AU (occurrence: AU)
  Receive Date: 20240527
  Receipt Date: 20240530
  Transmission Date: 20240715
  Serious: Yes (Other)
  Sender: FDA-Public Use
  Company Number: AU-MLMSERVICE-20240514-PI056879-00273-2

PATIENT
  Age: 18 Year
  Sex: Female

DRUGS (3)
  1. PROPOFOL [Suspect]
     Active Substance: PROPOFOL
     Indication: Sedative therapy
     Route: 065
  2. FUROSEMIDE [Concomitant]
     Active Substance: FUROSEMIDE
     Indication: Diuretic therapy
     Dosage: 32 MG, (1 MG/KG)
     Route: 065
  3. TECHNETIUM TC 99M MERTIATIDE [Concomitant]
     Active Substance: BETIATIDE
     Indication: Renal scan
     Dosage: INJECTIONS OF 238 MBQ
     Route: 042

REACTIONS (1)
  - Renal ischaemia [Unknown]
